FAERS Safety Report 9408946 (Version 1)
Quarter: 2013Q3

REPORT INFORMATION
  Report Type: Spontaneous
  Country: CH (occurrence: CH)
  Receive Date: 20130719
  Receipt Date: 20130719
  Transmission Date: 20140515
  Serious: Yes (Hospitalization, Other)
  Sender: FDA-Public Use
  Company Number: CH-TEVA-418161ISR

PATIENT
  Age: 8 Year
  Sex: Female
  Weight: 30 kg

DRUGS (10)
  1. NOPIL FORTE [Suspect]
     Indication: ADENOVIRUS INFECTION
     Dosage: 1 DOSAGE FORMS DAILY; 1 DF= 540MG
     Route: 048
     Dates: start: 201212, end: 20130424
  2. CARVEDILOL [Suspect]
     Indication: ADENOVIRUS INFECTION
     Dosage: 7 MILLIGRAM DAILY;
     Route: 048
     Dates: start: 201212
  3. NEXIUM 40MG ASTRA ZENECA [Suspect]
     Dosage: 40 MILLIGRAM DAILY;
     Route: 048
     Dates: start: 201212, end: 20130424
  4. ALDACTONE [Suspect]
     Indication: ADENOVIRUS INFECTION
     Dosage: 12.5 MILLIGRAM DAILY;
     Route: 048
     Dates: start: 201212
  5. ESIDREX [Suspect]
     Indication: ADENOVIRUS INFECTION
     Dosage: 12.5 MILLIGRAM DAILY;
     Route: 048
     Dates: start: 201212
  6. DIGOXIN [Suspect]
     Indication: ADENOVIRUS INFECTION
     Dosage: .1 MILLIGRAM DAILY;
     Route: 048
     Dates: start: 201212
  7. CLEXANE [Suspect]
     Indication: ADENOVIRUS INFECTION
     Dosage: 27 MILLIGRAM DAILY;
     Route: 058
     Dates: start: 201212
  8. VALTREX 500MG FILMTABLETTEN [Suspect]
     Dosage: 500 MILLIGRAM DAILY;
     Route: 048
     Dates: start: 201212, end: 20130424
  9. MAGNESIOCARD [Concomitant]
     Dosage: 5 MILLIMOL DAILY;
     Route: 048
     Dates: start: 201212, end: 20130424
  10. POTASSIUM [Concomitant]
     Dosage: 30 MILLIMOL DAILY;
     Route: 048
     Dates: start: 201212, end: 20130424

REACTIONS (1)
  - Pancytopenia [Recovered/Resolved]
